FAERS Safety Report 17194638 (Version 1)
Quarter: 2019Q4

REPORT INFORMATION
  Report Type: Spontaneous
  Country: GB (occurrence: GB)
  Receive Date: 20191224
  Receipt Date: 20191224
  Transmission Date: 20200122
  Serious: Yes (Other)
  Sender: FDA-Public Use
  Company Number: GB-AUROBINDO-AUR-APL-2019-106666

PATIENT
  Age: 66 Year
  Sex: Female
  Weight: 115 kg

DRUGS (2)
  1. OTOMIZE [Concomitant]
     Active Substance: DEXAMETHASONE\NEOMYCIN SULFATE
     Indication: PRODUCT USED FOR UNKNOWN INDICATION
     Dosage: UNK,USE 3 TIMES A DAY TO AFFECTED EAR
     Route: 065
     Dates: start: 20191125
  2. AMOXICILLIN CAPSULE [Suspect]
     Active Substance: AMOXICILLIN
     Indication: PRODUCT USED FOR UNKNOWN INDICATION
     Dosage: 500 MILLIGRAM
     Route: 065

REACTIONS (3)
  - Mouth swelling [Unknown]
  - Rash [Unknown]
  - Respiratory tract oedema [Unknown]
